FAERS Safety Report 7384298-6 (Version None)
Quarter: 2011Q1

REPORT INFORMATION
  Report Type: 
  Country: None (occurrence: None)
  Receive Date: 20110323
  Receipt Date: 20110307
  Transmission Date: 20110831
  Serious: Yes (Other)
  Sender: FDA-Public Use
  Company Number: 2008S1010980

PATIENT
  Age: 68 Year
  Sex: Male

DRUGS (15)
  1. CRESTOR [Concomitant]
  2. METFORMIN [Concomitant]
  3. METANX [Concomitant]
  4. LYRICA [Concomitant]
  5. ALEVE [Concomitant]
  6. AVALIDE [Concomitant]
  7. XALATAN [Concomitant]
  8. GAVISCON /0237601/ [Concomitant]
  9. ASPIRIN [Concomitant]
  10. PHOSPHOSODA FLAVOR NOT SPECIFIED [Suspect]
     Indication: COLONOSCOPY
     Dosage: 45 ML; X1; PO
     Route: 048
     Dates: start: 20060912, end: 20060913
  11. SYNTHROID [Concomitant]
  12. GLYBURIDE [Concomitant]
  13. GLUCOSAMINE W/CHONDROITIN SULFATE [Concomitant]
  14. TAZTIA [Concomitant]
  15. TIMOPTIC [Concomitant]

REACTIONS (7)
  - NEPHROSCLEROSIS [None]
  - HYPERPARATHYROIDISM SECONDARY [None]
  - RENAL FAILURE ACUTE [None]
  - METABOLIC ACIDOSIS [None]
  - RENAL FAILURE CHRONIC [None]
  - ACUTE PHOSPHATE NEPHROPATHY [None]
  - NEPHROGENIC ANAEMIA [None]
